FAERS Safety Report 5744502-4 (Version None)
Quarter: 2008Q2

REPORT INFORMATION
  Report Type: 
  Country: None (occurrence: None)
  Receive Date: 20080520
  Receipt Date: 20080515
  Transmission Date: 20081010
  Serious: Yes (Other)
  Sender: FDA-Public Use
  Company Number: BR-ASTRAZENECA-2008UW08392

PATIENT
  Age: 63 Year
  Sex: Female
  Weight: 58 kg

DRUGS (5)
  1. TAMOXIFEN CITRATE [Suspect]
     Indication: BREAST CANCER
     Route: 048
     Dates: start: 20060901, end: 20070901
  2. SYNTHROID [Concomitant]
     Indication: HYPOTHYROIDISM
     Route: 048
     Dates: start: 20010101
  3. FORASEC [Concomitant]
     Indication: ASTHMA
     Route: 055
     Dates: start: 20010101
  4. SPIRIVA [Concomitant]
     Indication: ASTHMA
     Route: 048
     Dates: start: 20040101
  5. SINGULAIR [Concomitant]
     Indication: ASTHMA
     Route: 055
     Dates: start: 20071201

REACTIONS (2)
  - LUNG CARCINOMA CELL TYPE UNSPECIFIED RECURRENT [None]
  - WEIGHT DECREASED [None]
